FAERS Safety Report 5405584-2 (Version None)
Quarter: 2007Q3

REPORT INFORMATION
  Report Type: 
  Country: None (occurrence: None)
  Receive Date: 20070803
  Receipt Date: 20070725
  Transmission Date: 20080115
  Serious: Yes (Hospitalization)
  Sender: FDA-Public Use
  Company Number: US-ABBOTT-07P-163-0375663-00

PATIENT
  Sex: Male
  Weight: 120 kg

DRUGS (5)
  1. LEVOTHYROXINE SODIUM [Suspect]
     Indication: DRUG USE FOR UNKNOWN INDICATION
     Route: 048
     Dates: start: 20060101
  2. LEVOTHYROXINE SODIUM [Suspect]
     Route: 048
     Dates: end: 20060101
  3. LEVOTHYROXINE SODIUM [Suspect]
     Dosage: DOSE DECREASED
  4. PROPRANOLOL [Suspect]
     Indication: HYPERTENSION
     Route: 048
     Dates: start: 20050101
  5. TERAZOSIN HCL [Concomitant]
     Indication: DRUG USE FOR UNKNOWN INDICATION

REACTIONS (3)
  - DYSPNOEA [None]
  - MENTAL DISORDER [None]
  - THYROID FUNCTION TEST ABNORMAL [None]
